FAERS Safety Report 10692141 (Version 2)
Quarter: 2015Q1

REPORT INFORMATION
  Report Type: Report from Study
  Country: TR (occurrence: TR)
  Receive Date: 20150106
  Receipt Date: 20150106
  Transmission Date: 20150720
  Serious: Yes (Other)
  Sender: FDA-Public Use
  Company Number: TR-EMD SERONO-7337755

PATIENT
  Age: 20 Year
  Sex: Female
  Weight: 65 kg

DRUGS (1)
  1. REBIF [Suspect]
     Active Substance: INTERFERON BETA-1A
     Indication: MULTIPLE SCLEROSIS
     Dates: start: 20141020

REACTIONS (1)
  - Immune thrombocytopenic purpura [Not Recovered/Not Resolved]

NARRATIVE: CASE EVENT DATE: 20141103
